FAERS Safety Report 9387008 (Version 1)
Quarter: 2013Q3

REPORT INFORMATION
  Report Type: Spontaneous
  Country: GB (occurrence: GB)
  Receive Date: 20130708
  Receipt Date: 20130708
  Transmission Date: 20140515
  Serious: Yes (Other)
  Sender: FDA-Public Use
  Company Number: GB-ACCORD-018309

PATIENT
  Age: 56 Year
  Sex: Female
  Weight: 76 kg

DRUGS (4)
  1. ANASTROZOLE [Suspect]
     Indication: PRODUCT USED FOR UNKNOWN INDICATION
     Dates: start: 20130221
  2. CLOBETASONE BUTYRATE [Concomitant]
     Dates: start: 20130510, end: 20130511
  3. AQUEOUS CREAM [Concomitant]
     Dates: start: 20130318, end: 20130319
  4. CHLORPHENAMINE [Concomitant]
     Dates: start: 20130510, end: 20130511

REACTIONS (3)
  - Erythema [Unknown]
  - Pruritus [Unknown]
  - Rash [Unknown]
